FAERS Safety Report 8255610-0 (Version None)
Quarter: 2012Q2

REPORT INFORMATION
  Report Type: 
  Country: None (occurrence: None)
  Receive Date: 20120403
  Receipt Date: 20120326
  Transmission Date: 20120825
  Serious: Yes (Disabling, Other)
  Sender: FDA-Public Use
  Company Number: PHHY2012JP004895

PATIENT
  Age: 85 Year
  Sex: Female

DRUGS (5)
  1. EXELON [Suspect]
     Dosage: 9 MG, DAILY
     Route: 062
     Dates: start: 20111130
  2. EXELON [Suspect]
     Dosage: 13.5MG (THREE 4.5MG PATCHES DAILY)
     Route: 062
     Dates: start: 20111223
  3. EXELON [Suspect]
     Dosage: 18 MG DAILY
     Route: 062
     Dates: start: 20120106, end: 20120119
  4. ISOSORBIDE DINITRATE [Concomitant]
     Route: 048
  5. EXELON [Suspect]
     Indication: DEMENTIA ALZHEIMER'S TYPE
     Dosage: 4.5 MG, DAILY
     Route: 062
     Dates: start: 20111125

REACTIONS (8)
  - SOMNOLENCE [None]
  - RENAL FAILURE [None]
  - ASTHENIA [None]
  - APHAGIA [None]
  - INCORRECT DOSE ADMINISTERED [None]
  - DEPRESSED LEVEL OF CONSCIOUSNESS [None]
  - DYSPHAGIA [None]
  - HYPERSOMNIA [None]
